FAERS Safety Report 10238376 (Version 1)
Quarter: 2014Q2

REPORT INFORMATION
  Report Type: Report from Study
  Country: US (occurrence: US)
  Receive Date: 20140616
  Receipt Date: 20140616
  Transmission Date: 20141212
  Serious: Yes (Other)
  Sender: FDA-Public Use
  Company Number: US-ROCHE-1417494

PATIENT
  Age: 12 Year
  Sex: Male

DRUGS (3)
  1. NUTROPIN [Suspect]
     Indication: BODY HEIGHT BELOW NORMAL
     Route: 058
     Dates: start: 201007
  2. LETROZOLE [Concomitant]
     Route: 048
     Dates: start: 201301
  3. ZOFRAN [Concomitant]
     Indication: NAUSEA
     Dosage: AS NEEDED
     Route: 048

REACTIONS (11)
  - Concussion [Unknown]
  - Meniscus injury [Unknown]
  - Infectious mononucleosis [Unknown]
  - Gait disturbance [Unknown]
  - Arthralgia [Unknown]
  - Joint dislocation [Unknown]
  - Pain in extremity [Unknown]
  - Delayed puberty [Unknown]
  - Pruritus allergic [Unknown]
  - Drug eruption [Unknown]
  - Blood testosterone decreased [Unknown]
